FAERS Safety Report 11857901 (Version 1)
Quarter: 2015Q4

REPORT INFORMATION
  Report Type: Spontaneous
  Country: US (occurrence: None)
  Receive Date: 20151221
  Receipt Date: 20151221
  Transmission Date: 20160305
  Serious: Yes (Hospitalization)
  Sender: FDA-Public Use
  Company Number: None

PATIENT
  Age: 64 Year
  Sex: Female
  Weight: 57.4 kg

DRUGS (1)
  1. TAXOTERE [Suspect]
     Active Substance: DOCETAXEL
     Dates: end: 20151026

REACTIONS (7)
  - Dyspnoea [None]
  - Tachycardia [None]
  - Erythema [None]
  - Hypoxia [None]
  - Crepitations [None]
  - Pulmonary embolism [None]
  - Respiratory distress [None]

NARRATIVE: CASE EVENT DATE: 20151116
